FAERS Safety Report 18065070 (Version 1)
Quarter: 2020Q3

REPORT INFORMATION
  Report Type: Spontaneous
  Country: US (occurrence: US)
  Receive Date: 20200724
  Receipt Date: 20200724
  Transmission Date: 20201103
  Serious: No
  Sender: FDA-Public Use
  Company Number: US-JNJFOC-20200729480

PATIENT
  Age: 49 Year
  Sex: Female
  Weight: 77.18 kg

DRUGS (1)
  1. STELARA [Suspect]
     Active Substance: USTEKINUMAB
     Indication: CROHN^S DISEASE
     Route: 058
     Dates: start: 201901

REACTIONS (4)
  - Product dose omission issue [Unknown]
  - Weight increased [Recovering/Resolving]
  - Crying [Unknown]
  - Stress [Unknown]

NARRATIVE: CASE EVENT DATE: 20200616
